FAERS Safety Report 26173698 (Version 1)
Quarter: 2025Q4

REPORT INFORMATION
  Report Type: Spontaneous
  Country: US (occurrence: US)
  Receive Date: 20251218
  Receipt Date: 20251218
  Transmission Date: 20260117
  Serious: No
  Sender: HIKMA
  Company Number: US-HIKMA PHARMACEUTICALS USA INC.-US-H14001-25-00184

PATIENT
  Sex: Female
  Weight: 86 kg

DRUGS (1)
  1. BALSALAZIDE [Suspect]
     Active Substance: BALSALAZIDE
     Indication: Colitis
     Dosage: 3 CAPSULES 3 TIMES A DAY (AT 12:15? 17:15? AND 22:15)
     Route: 048

REACTIONS (7)
  - Tooth discolouration [Unknown]
  - Underweight [Unknown]
  - Retention cyst [Unknown]
  - Inappropriate schedule of product administration [Unknown]
  - Accidental overdose [Unknown]
  - Drug ineffective [Unknown]
  - Wrong technique in product usage process [Unknown]
